FAERS Safety Report 22225728 (Version 1)
Quarter: 2023Q2

REPORT INFORMATION
  Report Type: Spontaneous
  Country: US (occurrence: US)
  Receive Date: 20230418
  Receipt Date: 20230418
  Transmission Date: 20230722
  Serious: Yes (Hospitalization)
  Sender: FDA-Public Use
  Company Number: US-JNJFOC-20230431169

PATIENT
  Age: 47 Year
  Sex: Male

DRUGS (1)
  1. INVOKANA [Suspect]
     Active Substance: CANAGLIFLOZIN
     Indication: Type 2 diabetes mellitus
     Route: 048

REACTIONS (4)
  - Osteomyelitis [Unknown]
  - Cellulitis [Unknown]
  - Diabetic foot [Unknown]
  - Foot amputation [Unknown]

NARRATIVE: CASE EVENT DATE: 20180221
